FAERS Safety Report 21135897 (Version 2)
Quarter: 2023Q1

REPORT INFORMATION
  Report Type: Spontaneous
  Country: JP (occurrence: JP)
  Receive Date: 20220727
  Receipt Date: 20230125
  Transmission Date: 20230417
  Serious: Yes (Hospitalization, Other)
  Sender: FDA-Public Use
  Company Number: JP-ASTELLAS-2022JP011144

PATIENT
  Sex: Male

DRUGS (6)
  1. PROGRAF [Suspect]
     Active Substance: TACROLIMUS
     Indication: Systemic lupus erythematosus
     Dosage: 3 MG/DAY, UNKNOWN FREQ.
     Route: 064
  2. HYDROXYCHLOROQUINE SULFATE [Concomitant]
     Active Substance: HYDROXYCHLOROQUINE SULFATE
     Indication: Systemic lupus erythematosus
     Dosage: 200 MG/DAY, UNKNOWN FREQ.
     Route: 064
  3. BETAMETHASONE [Concomitant]
     Active Substance: BETAMETHASONE
     Indication: Systemic lupus erythematosus
     Dosage: 1.75 MG/DAY, UNKNOWN FREQ.
     Route: 064
  4. BETAMETHASONE [Concomitant]
     Active Substance: BETAMETHASONE
     Route: 064
  5. BETAMETHASONE [Concomitant]
     Active Substance: BETAMETHASONE
     Route: 064
  6. BETAMETHASONE [Concomitant]
     Active Substance: BETAMETHASONE
     Dosage: 1.25 MG/DAY, UNKNOWN FREQ.
     Route: 064

REACTIONS (3)
  - Low birth weight baby [Unknown]
  - Premature baby [Unknown]
  - Foetal exposure during pregnancy [Unknown]
